FAERS Safety Report 5175614-4 (Version None)
Quarter: 2006Q4

REPORT INFORMATION
  Report Type: 
  Country: None (occurrence: None)
  Receive Date: 20061215
  Receipt Date: 20061206
  Transmission Date: 20070319
  Serious: Yes (Hospitalization)
  Sender: FDA-Public Use
  Company Number: AT-JNJFOC-20060306864

PATIENT
  Sex: Female
  Weight: 62.7 kg

DRUGS (3)
  1. INFLIXIMAB [Suspect]
     Indication: PSORIATIC ARTHROPATHY
     Route: 042
  2. INFLIXIMAB [Suspect]
     Indication: PSORIASIS
     Route: 042
  3. NEODOLPASSE [Concomitant]
     Indication: ARTHRALGIA
     Route: 042

REACTIONS (2)
  - DRUG HYPERSENSITIVITY [None]
  - HEPATIC ENZYME INCREASED [None]
